FAERS Safety Report 7263729-6 (Version None)
Quarter: 2011Q1

REPORT INFORMATION
  Report Type: 
  Country: None (occurrence: None)
  Receive Date: 20110130
  Receipt Date: 20101216
  Transmission Date: 20110831
  Serious: No
  Sender: FDA-Public Use
  Company Number: US-ABBOTT-10P-163-0692241-00

PATIENT
  Sex: Female

DRUGS (2)
  1. HUMIRA [Suspect]
     Indication: CROHN'S DISEASE
     Dates: start: 20091201
  2. HUMIRA [Suspect]

REACTIONS (3)
  - INJECTION SITE URTICARIA [None]
  - FLATULENCE [None]
  - ABDOMINAL DISTENSION [None]
